FAERS Safety Report 4744988-8 (Version None)
Quarter: 2005Q3

REPORT INFORMATION
  Report Type: 
  Country: None (occurrence: None)
  Receive Date: 20050811
  Receipt Date: 20050801
  Transmission Date: 20060218
  Serious: Yes (Disabling, Other)
  Sender: FDA-Public Use
  Company Number: S05-USA-02714-01

PATIENT
  Age: 87 Year
  Sex: Female
  Weight: 69.4003 kg

DRUGS (7)
  1. NAMENDA [Suspect]
     Indication: DEMENTIA ALZHEIMER'S TYPE
     Dosage: 10 MG BID PO
     Route: 048
     Dates: start: 20040101
  2. NAMENDA [Suspect]
     Indication: DEMENTIA ALZHEIMER'S TYPE
     Dosage: 5 M QD PO
     Route: 048
     Dates: start: 20040601, end: 20040101
  3. NAMENDA [Suspect]
     Indication: DEMENTIA ALZHEIMER'S TYPE
     Dosage: 5 MG BID PO
     Route: 048
     Dates: start: 20040101, end: 20040101
  4. NAMENDA [Suspect]
     Indication: DEMENTIA ALZHEIMER'S TYPE
     Dosage: 15 MG QD PO
     Route: 048
     Dates: start: 20040101, end: 20040101
  5. AVAPRO [Concomitant]
  6. LORAZEPAM [Concomitant]
  7. TYLENOL [Concomitant]

REACTIONS (14)
  - ABASIA [None]
  - ARTHRALGIA [None]
  - BEDRIDDEN [None]
  - BLOOD GLUCOSE INCREASED [None]
  - CONSTIPATION [None]
  - DEMENTIA ALZHEIMER'S TYPE [None]
  - DIFFICULTY IN WALKING [None]
  - DISEASE PROGRESSION [None]
  - DRUG INEFFECTIVE [None]
  - FALL [None]
  - IMPAIRED SELF-CARE [None]
  - PAIN IN EXTREMITY [None]
  - PARALYSIS [None]
  - SOCIAL AVOIDANT BEHAVIOUR [None]
